FAERS Safety Report 5926630-3 (Version None)
Quarter: 2008Q4

REPORT INFORMATION
  Report Type: 
  Country: None (occurrence: None)
  Receive Date: 20081022
  Receipt Date: 20081016
  Transmission Date: 20090506
  Serious: Yes (Hospitalization)
  Sender: FDA-Public Use
  Company Number: B0542080A

PATIENT
  Age: 73 Year
  Sex: Female

DRUGS (2)
  1. AMOXICILLIN TRIHYDRATE [Suspect]
     Dosage: 3G FOUR TIMES PER DAY
     Route: 042
     Dates: start: 20080905, end: 20080915
  2. URINARY CATHETERISATION [Concomitant]

REACTIONS (3)
  - HAEMATURIA [None]
  - OLIGURIA [None]
  - RENAL FAILURE ACUTE [None]
